FAERS Safety Report 26042694 (Version 1)
Quarter: 2025Q4

REPORT INFORMATION
  Report Type: Report from Study
  Country: CA (occurrence: CA)
  Receive Date: 20251113
  Receipt Date: 20251113
  Transmission Date: 20260119
  Serious: Yes (Other)
  Sender: AMGEN
  Company Number: CA-BEH-2025192157

PATIENT
  Age: 35 Year
  Sex: Male

DRUGS (1)
  1. AVACOPAN [Suspect]
     Active Substance: AVACOPAN
     Indication: Anti-neutrophil cytoplasmic antibody positive vasculitis
     Dosage: 30 MG, BID
     Route: 048
     Dates: start: 20241106

REACTIONS (2)
  - Swelling face [Unknown]
  - Angioedema [Unknown]

NARRATIVE: CASE EVENT DATE: 20250110
